FAERS Safety Report 9851733 (Version 1)
Quarter: 2014Q1

REPORT INFORMATION
  Report Type: Spontaneous
  Country: US (occurrence: US)
  Receive Date: 20140129
  Receipt Date: 20140129
  Transmission Date: 20141002
  Serious: Yes (Hospitalization)
  Sender: FDA-Public Use
  Company Number: US-ROCHE-1337872

PATIENT
  Sex: Female

DRUGS (1)
  1. ROCEPHIN [Suspect]
     Indication: URINARY TRACT INFECTION
     Route: 065

REACTIONS (11)
  - Cholelithiasis [Unknown]
  - Erythema [Unknown]
  - Pain in extremity [Unknown]
  - Local swelling [Unknown]
  - Skin exfoliation [Unknown]
  - Hepatic enzyme increased [Unknown]
  - Local swelling [Unknown]
  - Pain in extremity [Unknown]
  - Pruritus [Unknown]
  - Musculoskeletal pain [Unknown]
  - Arthralgia [Unknown]
